FAERS Safety Report 6334840-9 (Version None)
Quarter: 2009Q3

REPORT INFORMATION
  Report Type: 
  Country: None (occurrence: None)
  Receive Date: 20090831
  Receipt Date: 20090827
  Transmission Date: 20100115
  Serious: Yes (Death)
  Sender: FDA-Public Use
  Company Number: PHHY2009BE36483

PATIENT
  Age: 53 Year
  Sex: Female
  Weight: 49 kg

DRUGS (6)
  1. CYCLOSPORINE [Suspect]
     Indication: HISTIOCYTOSIS HAEMATOPHAGIC
     Dosage: UNK
  2. DEXAMETHASONE [Concomitant]
     Indication: HISTIOCYTOSIS HAEMATOPHAGIC
  3. ETOPOSIDE [Concomitant]
     Indication: HISTIOCYTOSIS HAEMATOPHAGIC
  4. CHEMOTHERAPY [Concomitant]
     Indication: HISTIOCYTOSIS HAEMATOPHAGIC
  5. CORTICOSTEROIDS [Concomitant]
  6. AMPHOTERICIN B [Concomitant]
     Indication: LEISHMANIASIS

REACTIONS (2)
  - BRONCHOPULMONARY ASPERGILLOSIS [None]
  - RESPIRATORY FAILURE [None]
